FAERS Safety Report 20655388 (Version 1)
Quarter: 2022Q1

REPORT INFORMATION
  Report Type: Report from Study
  Country: IT (occurrence: IT)
  Receive Date: 20220330
  Receipt Date: 20220330
  Transmission Date: 20220423
  Serious: Yes (Hospitalization)
  Sender: FDA-Public Use
  Company Number: IT-DSJP-DSE-2020-112860

PATIENT
  Age: 89 Year
  Sex: Male

DRUGS (4)
  1. DARUNAVIR [Interacting]
     Active Substance: DARUNAVIR
     Indication: Coronavirus infection
     Dosage: UNK
     Route: 048
     Dates: start: 2020
  2. EDOXABAN [Interacting]
     Active Substance: EDOXABAN
     Indication: Atrial fibrillation
     Dosage: 30 MG, QD
     Route: 048
     Dates: start: 2020
  3. RITONAVIR [Suspect]
     Active Substance: RITONAVIR
     Indication: Coronavirus infection
     Dosage: UNK
     Route: 048
     Dates: start: 2020
  4. HYDROXYCHLOROQUINE [Concomitant]
     Active Substance: HYDROXYCHLOROQUINE
     Indication: Product used for unknown indication
     Dosage: UNK
     Dates: start: 2020

REACTIONS (5)
  - Coronavirus infection [Unknown]
  - Anticoagulation drug level increased [Unknown]
  - Drug interaction [Unknown]
  - Off label use [Unknown]
  - Product use in unapproved indication [Unknown]

NARRATIVE: CASE EVENT DATE: 20200101
